FAERS Safety Report 4990710-X (Version None)
Quarter: 2006Q2

REPORT INFORMATION
  Report Type: 
  Country: None (occurrence: None)
  Receive Date: 20060427
  Receipt Date: 20060417
  Transmission Date: 20061013
  Serious: Yes (Other)
  Sender: FDA-Public Use
  Company Number: 2006051909

PATIENT
  Age: 64 Year
  Sex: Female

DRUGS (3)
  1. ZOLOFT [Suspect]
     Indication: DEPRESSION
  2. NORVASC [Suspect]
     Indication: BLOOD PRESSURE ABNORMAL
  3. BENADRYL [Suspect]
     Indication: DYSTONIA

REACTIONS (8)
  - BLOOD PRESSURE ABNORMAL [None]
  - CARDIAC DISORDER [None]
  - DYSTONIA [None]
  - EYE DISORDER [None]
  - GAZE PALSY [None]
  - HYPOTENSION [None]
  - MUSCLE TWITCHING [None]
  - NASOPHARYNGEAL DISORDER [None]
